FAERS Safety Report 15459100 (Version 1)
Quarter: 2018Q4

REPORT INFORMATION
  Report Type: Report from Study
  Country: CA (occurrence: CA)
  Receive Date: 20181003
  Receipt Date: 20181003
  Transmission Date: 20190204
  Serious: Yes (Other)
  Sender: FDA-Public Use
  Company Number: PHHY2015CA010738

PATIENT
  Age: 46 Year
  Sex: Female

DRUGS (1)
  1. GILENYA [Suspect]
     Active Substance: FINGOLIMOD HYDROCHLORIDE
     Indication: PRODUCT USED FOR UNKNOWN INDICATION
     Dosage: UNK
     Route: 048
     Dates: start: 20140813, end: 20180404

REACTIONS (13)
  - Pain [Unknown]
  - Diarrhoea [Recovered/Resolved]
  - Pain in extremity [Unknown]
  - Malaise [Unknown]
  - Influenza [Unknown]
  - Multiple sclerosis relapse [Recovered/Resolved]
  - Hypersomnia [Unknown]
  - Pyrexia [Unknown]
  - Nausea [Unknown]
  - Nasal congestion [Unknown]
  - Headache [Unknown]
  - Urine analysis abnormal [Unknown]
  - Back pain [Unknown]

NARRATIVE: CASE EVENT DATE: 20160314
